FAERS Safety Report 7910436-X (Version None)
Quarter: 2011Q4

REPORT INFORMATION
  Report Type: 
  Country: None (occurrence: None)
  Receive Date: 20111111
  Receipt Date: 20111027
  Transmission Date: 20120403
  Serious: Yes (Other)
  Sender: FDA-Public Use
  Company Number: US-JUTA GMBH-2011-18633

PATIENT
  Age: 28 Year
  Sex: Female

DRUGS (1)
  1. TRAMADOL HCL [Suspect]
     Indication: PRODUCT USED FOR UNKNOWN INDICATION
     Dosage: 1200 MG - 1600 MG OVER THE PRIOR 2 DAYS
     Route: 065

REACTIONS (3)
  - CONVULSION [None]
  - OVERDOSE [None]
  - FALSE NEGATIVE INVESTIGATION RESULT [None]
